FAERS Safety Report 13928752 (Version 1)
Quarter: 2017Q3

REPORT INFORMATION
  Report Type: Spontaneous
  Country: FR (occurrence: FR)
  Receive Date: 20170901
  Receipt Date: 20170901
  Transmission Date: 20171127
  Serious: Yes (Hospitalization)
  Sender: FDA-Public Use
  Company Number: FR-TEVA-800613ROM

PATIENT
  Age: 9 Year
  Sex: Male
  Weight: 30.5 kg

DRUGS (2)
  1. CISPLATINE ACCORD [Suspect]
     Active Substance: CISPLATIN
     Indication: MEDULLOBLASTOMA
     Dosage: TOOK AT DAY 1
     Route: 042
     Dates: start: 20170710
  2. VINCRISTINE TEVA [Suspect]
     Active Substance: VINCRISTINE
     Indication: MEDULLOBLASTOMA
     Dosage: ON DAY 1, 8 AND 15 - LAST DOSE PRIOR TO THE AE: 24-JUL-2017
     Route: 042
     Dates: start: 20170710

REACTIONS (2)
  - Febrile neutropenia [Recovered/Resolved]
  - Anaemia [Recovered/Resolved]

NARRATIVE: CASE EVENT DATE: 20170726
